FAERS Safety Report 13258538 (Version 1)
Quarter: 2017Q1

REPORT INFORMATION
  Report Type: Spontaneous
  Country: CA (occurrence: CA)
  Receive Date: 20170222
  Receipt Date: 20170222
  Transmission Date: 20170428
  Serious: Yes (Disabling)
  Sender: FDA-Public Use
  Company Number: CA-TEVA-741384ACC

PATIENT
  Age: 53 Year
  Sex: Female
  Weight: 104.42 kg

DRUGS (1)
  1. PANTOPRAZOLE [Suspect]
     Active Substance: PANTOPRAZOLE SODIUM
     Indication: GASTROOESOPHAGEAL REFLUX DISEASE
     Dosage: 80 MILLIGRAM DAILY;
     Route: 048

REACTIONS (3)
  - C-reactive protein increased [Recovered/Resolved]
  - Musculoskeletal stiffness [Recovered/Resolved]
  - Arthritis [Recovered/Resolved]
